FAERS Safety Report 7536713-2 (Version None)
Quarter: 2011Q2

REPORT INFORMATION
  Report Type: 
  Country: None (occurrence: None)
  Receive Date: 20110609
  Receipt Date: 20110202
  Transmission Date: 20111010
  Serious: Yes (Hospitalization)
  Sender: FDA-Public Use
  Company Number: B0698176A

PATIENT
  Sex: Female
  Weight: 75 kg

DRUGS (3)
  1. BETAMETHASONE [Concomitant]
     Route: 048
     Dates: start: 20110114
  2. TYKERB [Suspect]
     Indication: BREAST CANCER
     Dosage: 1250MG PER DAY
     Route: 048
     Dates: start: 20110118, end: 20110128
  3. XELODA [Suspect]
     Dosage: 2400MG PER DAY
     Route: 048
     Dates: start: 20101203, end: 20110125

REACTIONS (1)
  - STEVENS-JOHNSON SYNDROME [None]
